FAERS Safety Report 8105888-9 (Version None)
Quarter: 2012Q1

REPORT INFORMATION
  Report Type: 
  Country: None (occurrence: None)
  Receive Date: 20120202
  Receipt Date: 20120123
  Transmission Date: 20120608
  Serious: No
  Sender: FDA-Public Use
  Company Number: US-BIOGENIDEC-2011BI044920

PATIENT
  Age: 47 Year
  Sex: Female

DRUGS (1)
  1. TYSABRI [Suspect]
     Indication: MULTIPLE SCLEROSIS
     Route: 042
     Dates: start: 20111024

REACTIONS (9)
  - NAUSEA [None]
  - GAIT DISTURBANCE [None]
  - RASH [None]
  - BURNING SENSATION [None]
  - BACK PAIN [None]
  - DIZZINESS [None]
  - URTICARIA [None]
  - MOVEMENT DISORDER [None]
  - CYSTITIS [None]
